FAERS Safety Report 4632405-8 (Version None)
Quarter: 2005Q2

REPORT INFORMATION
  Report Type: 
  Country: None (occurrence: None)
  Receive Date: 20050411
  Receipt Date: 20050331
  Transmission Date: 20051028
  Serious: Yes (Death)
  Sender: FDA-Public Use
  Company Number: US-BRISTOL-MYERS SQUIBB COMPANY-12918009

PATIENT
  Age: 48 Year

DRUGS (1)
  1. PLATINOL-AQ [Suspect]

REACTIONS (1)
  - DEATH [None]
